FAERS Safety Report 4512095-5 (Version None)
Quarter: 2004Q4

REPORT INFORMATION
  Report Type: 
  Country: None (occurrence: None)
  Receive Date: 20041129
  Receipt Date: 20040930
  Transmission Date: 20050328
  Serious: Yes (Hospitalization, Congenital Anomaly)
  Sender: FDA-Public Use
  Company Number: US-ROCHE-382245

PATIENT
  Sex: Male

DRUGS (3)
  1. ACCUTANE [Suspect]
     Dates: start: 19840109, end: 19840205
  2. ACCUTANE [Suspect]
     Dates: start: 19831118, end: 19840108
  3. ACCUTANE [Suspect]
     Dates: start: 19840206, end: 19840330

REACTIONS (28)
  - ABDOMINAL DISTENSION [None]
  - ANOMALY OF MIDDLE EAR CONGENITAL [None]
  - APPENDIX DISORDER [None]
  - BIOPSY COLON ABNORMAL [None]
  - BLOOD OSMOLARITY DECREASED [None]
  - BRONCHITIS [None]
  - CITROBACTER INFECTION [None]
  - COLLAPSE OF LUNG [None]
  - CONGENITAL MUSCULOSKELETAL ANOMALY [None]
  - CONGENITAL SCOLIOSIS [None]
  - CONSTIPATION [None]
  - DRUG EXPOSURE DURING PREGNANCY [None]
  - ENTEROCOCCAL INFECTION [None]
  - HAEMATOCRIT DECREASED [None]
  - HAEMOGLOBIN DECREASED [None]
  - HEMIVERTEBRA [None]
  - HYPOKINESIA [None]
  - ILEUS PARALYTIC [None]
  - INFECTION [None]
  - INFLAMMATION [None]
  - INTESTINAL TRANSPOSITION [None]
  - LEARNING DISORDER [None]
  - LUNG DISORDER [None]
  - PSYCHOMOTOR SKILLS IMPAIRED [None]
  - RED BLOOD CELL COUNT DECREASED [None]
  - RESPIRATORY DISTRESS [None]
  - SINUS TACHYCARDIA [None]
  - SOCIAL PROBLEM [None]
